FAERS Safety Report 15432928 (Version 1)
Quarter: 2018Q3

REPORT INFORMATION
  Report Type: Spontaneous
  Country: CH (occurrence: CH)
  Receive Date: 20180927
  Receipt Date: 20180927
  Transmission Date: 20181010
  Serious: Yes (Other)
  Sender: FDA-Public Use
  Company Number: CH-NOVEN PHARMACEUTICALS, INC.-CH2017001100

PATIENT

DRUGS (4)
  1. BECOZYME [Concomitant]
     Active Substance: VITAMINS
  2. TRULICITY [Concomitant]
     Active Substance: DULAGLUTIDE
  3. ESTRADIOL/NORETHISTERONE ACETATE [Suspect]
     Active Substance: ESTRADIOL\NORETHINDRONE ACETATE
     Indication: OESTROGEN DEFICIENCY
     Dosage: UNK, UNKNOWN
     Route: 062
     Dates: start: 20170217, end: 20170815
  4. TRESIBA [Concomitant]
     Active Substance: INSULIN DEGLUDEC

REACTIONS (2)
  - Haemorrhage [Recovered/Resolved]
  - Pain [Recovered/Resolved]

NARRATIVE: CASE EVENT DATE: 20170217
